FAERS Safety Report 18796821 (Version 2)
Quarter: 2021Q1

REPORT INFORMATION
  Report Type: Spontaneous
  Country: RU (occurrence: RU)
  Receive Date: 20210127
  Receipt Date: 20210205
  Transmission Date: 20210419
  Serious: Yes (Other)
  Sender: FDA-Public Use
  Company Number: NVSC2021RU014467

PATIENT
  Age: 42 Year
  Sex: Male

DRUGS (4)
  1. OXALIPLATIN. [Suspect]
     Active Substance: OXALIPLATIN
     Indication: GASTRIC CANCER
     Dosage: 85 MG/M2 (9 COURSES OF THE 1ST LINE FLOT CHEMOTHERAPY)
     Route: 042
     Dates: start: 20190326, end: 20190822
  2. FLUOROURACIL. [Suspect]
     Active Substance: FLUOROURACIL
     Indication: GASTRIC CANCER
     Dosage: 2600 MG/M2 (9 COURSES OF THE 1ST LINE FLOT CHEMOTHERAPY)
     Route: 042
     Dates: start: 20190326, end: 20190822
  3. DOCETAXEL. [Suspect]
     Active Substance: DOCETAXEL
     Indication: GASTRIC CANCER
     Dosage: 50 MG/M2 (9 COURSES OF THE 1ST LINE FLOT CHEMOTHERAPY)
     Route: 042
     Dates: start: 20190326, end: 20190822
  4. LEUCOVORIN. [Suspect]
     Active Substance: LEUCOVORIN
     Indication: GASTRIC CANCER
     Dosage: 200 MG/M2 (9 COURSES OF THE 1ST LINE FLOT CHEMOTHERAPY)
     Route: 042
     Dates: start: 20190326, end: 20190822

REACTIONS (3)
  - Palmar-plantar erythrodysaesthesia syndrome [Unknown]
  - Polyneuropathy [Unknown]
  - Product use in unapproved indication [Unknown]
